FAERS Safety Report 13678255 (Version 1)
Quarter: 2017Q2

REPORT INFORMATION
  Report Type: Spontaneous
  Country: US (occurrence: US)
  Receive Date: 20170621
  Receipt Date: 20170621
  Transmission Date: 20170830
  Serious: Yes (Other)
  Sender: FDA-Public Use
  Company Number: None

PATIENT
  Age: 70 Year
  Sex: Female
  Weight: 104 kg

DRUGS (2)
  1. CAPECITABINE TABLET [Suspect]
     Active Substance: CAPECITABINE
     Indication: GASTRIC NEOPLASM
     Route: 048
     Dates: start: 20170516, end: 20170616
  2. CAPECITABINE TABLET [Suspect]
     Active Substance: CAPECITABINE
     Indication: GASTRIC NEOPLASM
     Route: 048
     Dates: start: 20170516, end: 20170616

REACTIONS (1)
  - Disease progression [None]
